FAERS Safety Report 6675506-5 (Version None)
Quarter: 2010Q2

REPORT INFORMATION
  Report Type: 
  Country: None (occurrence: None)
  Receive Date: 20100409
  Receipt Date: 20100330
  Transmission Date: 20101027
  Serious: Yes (Other)
  Sender: FDA-Public Use
  Company Number: D0067087A

PATIENT
  Sex: Female

DRUGS (2)
  1. NARAMIG [Suspect]
     Dosage: 2.5MG PER DAY
     Route: 048
  2. INSIDON [Suspect]
     Route: 048

REACTIONS (2)
  - DRUG ABUSE [None]
  - NAUSEA [None]
